FAERS Safety Report 23051375 (Version 2)
Quarter: 2023Q4

REPORT INFORMATION
  Report Type: Spontaneous
  Country: JP (occurrence: JP)
  Receive Date: 20231010
  Receipt Date: 20231011
  Transmission Date: 20240110
  Serious: Yes (Hospitalization)
  Sender: FDA-Public Use
  Company Number: JP-BRISTOL-MYERS SQUIBB COMPANY-2023-140410

PATIENT
  Age: 49 Year
  Sex: Female

DRUGS (1)
  1. APIXABAN [Suspect]
     Active Substance: APIXABAN
     Indication: Product used for unknown indication

REACTIONS (6)
  - Activated partial thromboplastin time prolonged [Recovered/Resolved]
  - Anti factor X activity increased [Recovered/Resolved]
  - Prothrombin time ratio increased [Recovered/Resolved]
  - Antithrombin III increased [Recovered/Resolved]
  - Intentional overdose [Unknown]
  - Impulsive behaviour [Unknown]
